FAERS Safety Report 4389339-6 (Version None)
Quarter: 2004Q3

REPORT INFORMATION
  Report Type: 
  Country: None (occurrence: None)
  Receive Date: 20040701
  Receipt Date: 20040701
  Transmission Date: 20050211
  Serious: Yes (Other)
  Sender: FDA-Public Use
  Company Number: None

PATIENT
  Age: 30 Year
  Sex: Male

DRUGS (2)
  1. ISONIAZID [Suspect]
     Indication: PROPHYLAXIS
     Dosage: 300 MG 2X A WEEK PO
     Route: 048
     Dates: start: 20031114
  2. VITAMIN B6 [Concomitant]

REACTIONS (1)
  - HEPATIC ENZYME INCREASED [None]
